FAERS Safety Report 21379768 (Version 1)
Quarter: 2022Q3

REPORT INFORMATION
  Report Type: Spontaneous
  Country: US (occurrence: None)
  Receive Date: 20220923
  Receipt Date: 20220923
  Transmission Date: 20221026
  Serious: Yes (unspecified)
  Sender: FDA-Public Use
  Company Number: None

PATIENT
  Age: 41 Year
  Sex: Male

DRUGS (1)
  1. ETANERCEPT [Suspect]
     Active Substance: ETANERCEPT
     Dosage: 50 MG OTHER SQ
     Route: 058
     Dates: start: 20220607, end: 20220722

REACTIONS (2)
  - Hypersensitivity [None]
  - Rash [None]

NARRATIVE: CASE EVENT DATE: 20220722
